FAERS Safety Report 8443709 (Version 3)
Quarter: 2013Q2

REPORT INFORMATION
  Report Type: Report from Study
  Country: JP (occurrence: JP)
  Receive Date: 20120306
  Receipt Date: 20130514
  Transmission Date: 20140414
  Serious: Yes (Death, Hospitalization)
  Sender: FDA-Public Use
  Company Number: PHHY2012JP016530

PATIENT
  Age: 83 Year
  Sex: Male

DRUGS (7)
  1. AMN107 [Suspect]
     Indication: CHRONIC MYELOID LEUKAEMIA
     Dosage: 200 MG,
     Route: 048
     Dates: start: 20100716, end: 20101002
  2. AMN107 [Suspect]
     Dosage: 200 MG, QW3
     Dates: start: 20101003
  3. ZYLORIC [Concomitant]
     Indication: GOUT
     Dosage: 100 MG,
     Route: 048
     Dates: start: 20100716
  4. AMARYL [Concomitant]
     Indication: TYPE 2 DIABETES MELLITUS
     Dosage: 1 MG,
     Route: 048
     Dates: start: 20100716
  5. BLOPRESS [Concomitant]
     Indication: HYPERTENSION
     Dosage: 8 MG,
     Route: 048
     Dates: start: 20100716
  6. ARTIST [Concomitant]
     Indication: HYPERTENSION
     Dosage: 7.5 MG, UNK
     Route: 048
     Dates: start: 20100716
  7. MARZULENE S [Concomitant]
     Indication: GASTRITIS
     Dosage: 1.5 MG,
     Route: 048
     Dates: start: 20100716

REACTIONS (1)
  - Pneumonia [Fatal]
